FAERS Safety Report 6074442-5 (Version None)
Quarter: 2009Q1

REPORT INFORMATION
  Report Type: 
  Country: None (occurrence: None)
  Receive Date: 20090206
  Receipt Date: 20090128
  Transmission Date: 20090719
  Serious: Yes (Death, Hospitalization, Other)
  Sender: FDA-Public Use
  Company Number: WAES 0901ESP00035

PATIENT
  Age: 63 Year
  Sex: Female

DRUGS (17)
  1. EZETIMIBE [Suspect]
     Indication: HYPERLIPIDAEMIA
     Dosage: 10 MG/Q12H
     Route: 048
     Dates: start: 20070901
  2. ATORVASTATIN CALCIUM [Suspect]
     Indication: HYPERLIPIDAEMIA
     Dosage: 80 MG DAILY
     Dates: start: 20070901
  3. ALBUTEROL [Concomitant]
  4. AMLODIPINE [Concomitant]
  5. CLOPIDOGREL BISULFATE [Concomitant]
  6. FENTANYL [Concomitant]
  7. FUROSEMIDE [Concomitant]
  8. GABAPENTIN [Concomitant]
  9. HYDROXOCOBALAMIN (+) PYRIDOXINE HYDROCHLORIDE [Concomitant]
  10. INSULIN [Concomitant]
  11. INSULIN ASPART [Concomitant]
  12. METFORMIN HCL [Concomitant]
  13. MORPHINE [Concomitant]
  14. OMEPRAZOLE [Concomitant]
  15. RAMIPRIL [Concomitant]
  16. ALBUTEROL [Concomitant]
  17. VALSARTAN [Concomitant]

REACTIONS (17)
  - ANOXIC ENCEPHALOPATHY [None]
  - CARDIO-RESPIRATORY ARREST [None]
  - CEREBROVASCULAR ACCIDENT [None]
  - COR PULMONALE [None]
  - CYTOLYTIC HEPATITIS [None]
  - DIABETES MELLITUS INADEQUATE CONTROL [None]
  - DIABETIC MACROANGIOPATHY [None]
  - DIABETIC MICROANGIOPATHY [None]
  - HYPOGLYCAEMIA [None]
  - LOBAR PNEUMONIA [None]
  - OBESITY [None]
  - OVERDOSE [None]
  - RENAL FAILURE [None]
  - RENAL FAILURE ACUTE [None]
  - RESPIRATORY ACIDOSIS [None]
  - RESPIRATORY TRACT INFECTION [None]
  - UPPER RESPIRATORY TRACT INFECTION [None]
